FAERS Safety Report 7687367-6 (Version None)
Quarter: 2011Q3

REPORT INFORMATION
  Report Type: 
  Country: None (occurrence: None)
  Receive Date: 20110816
  Receipt Date: 20110808
  Transmission Date: 20111222
  Serious: Yes (Death, Life-Threatening)
  Sender: FDA-Public Use
  Company Number: JP-CELGENEUS-087-C5013-11073258

PATIENT
  Sex: Female

DRUGS (30)
  1. ZOLEDRONIC ACID [Concomitant]
     Indication: HYPERCALCAEMIA
     Route: 065
  2. TRANSFUSION [Concomitant]
     Indication: PLATELET COUNT DECREASED
     Route: 041
     Dates: start: 20110723, end: 20110723
  3. MICAFUNGIN [Concomitant]
     Indication: ANTIFUNGAL PROPHYLAXIS
     Dosage: 75 MILLIGRAM
     Route: 041
     Dates: start: 20110705, end: 20110728
  4. AMIKACIN SULFATE [Concomitant]
     Indication: ANTI-INFECTIVE THERAPY
     Dosage: 400 MILLIGRAM
     Route: 041
     Dates: start: 20110724, end: 20110728
  5. HIGH-CALORIE INFUSION [Concomitant]
     Dosage: 903 MILLILITER
     Route: 041
     Dates: start: 20110724, end: 20110728
  6. D-CHLORPHENIRAMINE MALEATE [Concomitant]
     Indication: PRURITUS
     Dosage: 2 MILLIGRAM
     Route: 048
     Dates: start: 20110709, end: 20110722
  7. PENTAZOCINE LACTATE [Concomitant]
     Dosage: 15 MILLIGRAM
     Route: 041
     Dates: start: 20110702, end: 20110717
  8. MIDAZOLAM HCL [Concomitant]
     Indication: SEDATION
     Dosage: 2 MILLILITER
     Route: 041
     Dates: start: 20110727, end: 20110728
  9. DOPAMINE HYDROCHLORIDE [Concomitant]
     Dosage: 600 MILLIGRAM
     Route: 041
     Dates: start: 20110728, end: 20110728
  10. LENALIDOMIDE [Suspect]
     Indication: T-CELL LYMPHOMA
     Dosage: 35 MILLIGRAM
     Route: 048
     Dates: start: 20110627, end: 20110720
  11. ANALGESIC [Concomitant]
     Route: 065
  12. L-CARBOCISTEINE [Concomitant]
     Dosage: 500 MILLIGRAM
     Route: 048
     Dates: start: 20110627, end: 20110717
  13. DEXTROMETHORPHAN HYDROBROMIDE HYDRATE [Concomitant]
     Indication: COUGH
     Dosage: 15 MILLIGRAM
     Route: 048
     Dates: start: 20110629, end: 20110719
  14. POVIDONE IODINE [Concomitant]
     Indication: SEDATION
     Route: 065
     Dates: start: 20110605, end: 20110728
  15. HYDROCORTISONE [Concomitant]
     Indication: HAEMORRHOIDS
     Route: 061
     Dates: start: 20110710, end: 20110710
  16. HYDROXYZINE [Concomitant]
     Indication: ANXIOLYTIC THERAPY
     Dosage: 25 MILLIGRAM
     Route: 041
     Dates: start: 20110722, end: 20110723
  17. MEROPENEM [Concomitant]
     Indication: ANTI-INFECTIVE THERAPY
     Dosage: 1 GRAM
     Route: 041
     Dates: start: 20110726, end: 20110728
  18. ANTIPYRETIC [Concomitant]
     Route: 065
  19. PREDNISONE [Concomitant]
     Indication: TUMOUR FLARE
     Dosage: 20 MILLIGRAM
     Route: 041
     Dates: start: 20110704, end: 20110728
  20. ITRACONAZOLE [Concomitant]
     Indication: INFECTION PROPHYLAXIS
     Dosage: 100 MILLIGRAM
     Route: 048
     Dates: start: 20110627, end: 20110724
  21. GENTAMICIN SULFATE [Concomitant]
     Route: 061
     Dates: start: 20110705, end: 20110728
  22. FAMOTIDINE [Concomitant]
     Indication: PROPHYLAXIS
     Dosage: 20 MILLIGRAM
     Route: 048
     Dates: start: 20110627, end: 20110724
  23. SULFAMETHOXAZOLE AND TRIMETHOPRIM [Concomitant]
     Indication: INFECTION PROPHYLAXIS
     Dosage: 1 GRAM
     Route: 048
     Dates: start: 20110627, end: 20110717
  24. LOXOPROFEN SODIUM HYDRATE [Concomitant]
     Indication: PAIN
     Dosage: 60 MILLIGRAM
     Route: 048
     Dates: start: 20110629, end: 20110719
  25. ZOPICLONE [Concomitant]
     Indication: SEDATION
     Dosage: 7.5 MILLIGRAM
     Route: 048
     Dates: start: 20110629, end: 20110719
  26. TRIAMCINOLONE ACETONIDE [Concomitant]
     Indication: STOMATITIS
     Route: 061
     Dates: start: 20110605, end: 20110727
  27. NEUPOGEN [Concomitant]
     Dosage: 75 MILLIGRAM
     Route: 058
     Dates: start: 20110711, end: 20110712
  28. CEFOPERAZON SODIUM/SULBACTAM SODIUM [Concomitant]
     Indication: ANTI-INFECTIVE THERAPY
     Dosage: 1 GRAM
     Route: 041
     Dates: start: 20110715, end: 20110725
  29. FRADIOMYCIN [Concomitant]
     Indication: HAEMORRHOIDS
     Route: 061
  30. OLOPATADINE HYDROCHLORIDE [Concomitant]
     Dosage: 5 MILLIGRAM
     Route: 048
     Dates: start: 20110709, end: 20110722

REACTIONS (2)
  - ADULT T-CELL LYMPHOMA/LEUKAEMIA [None]
  - SEPSIS [None]
